FAERS Safety Report 13080125 (Version 1)
Quarter: 2017Q1

REPORT INFORMATION
  Report Type: Spontaneous
  Country: JP (occurrence: JP)
  Receive Date: 20170103
  Receipt Date: 20170103
  Transmission Date: 20170428
  Serious: Yes (Life-Threatening, Hospitalization)
  Sender: FDA-Public Use
  Company Number: JP-HQ SPECIALTY-JP-2016INT001007

PATIENT
  Age: 54 Year
  Sex: Male
  Weight: 53.4 kg

DRUGS (20)
  1. VANCOMYCIN HYDROCHLORIDE. [Suspect]
     Active Substance: VANCOMYCIN HYDROCHLORIDE
     Indication: INFECTION
     Dosage: 1 G, (1 G, 1 IN 1 D)
     Route: 042
     Dates: start: 20120922, end: 20120925
  2. MIDAZOLAM [Suspect]
     Active Substance: MIDAZOLAM HYDROCHLORIDE
     Indication: SEDATION
     Dosage: 3-20 MG/HR (1 D)
     Route: 042
     Dates: start: 20120923
  3. DEXMEDETOMIDINE HYDROCHLORIDE. [Suspect]
     Active Substance: DEXMEDETOMIDINE HYDROCHLORIDE
     Indication: MUSCLE SPASMS
     Dosage: 20-40 MCG (1 IN 1 D)
     Route: 042
     Dates: start: 20120909, end: 20120913
  4. MAGNESIUM SULFATE. [Suspect]
     Active Substance: MAGNESIUM SULFATE
     Indication: MUSCLE SPASMS
     Dosage: 20-60 MEQ (1 D)
     Route: 042
     Dates: start: 20120908, end: 20121113
  5. MIDAZOLAM [Suspect]
     Active Substance: MIDAZOLAM HYDROCHLORIDE
     Indication: MUSCLE SPASMS
     Dosage: 3-20 MG/H (1 IN 1 D)
     Route: 042
     Dates: start: 20120904, end: 20120913
  6. DANTRIUM [Suspect]
     Active Substance: DANTROLENE SODIUM
     Indication: MUSCLE CONTRACTIONS INVOLUNTARY
     Dosage: 25 MG (12.5 MG, 2 IN 1 D)
     Route: 042
     Dates: start: 20120922, end: 20120923
  7. DEXMEDETOMIDINE HYDROCHLORIDE. [Suspect]
     Active Substance: DEXMEDETOMIDINE HYDROCHLORIDE
     Indication: SEDATION
     Dosage: UNK
     Route: 042
  8. RAVONAL [Suspect]
     Active Substance: THIOPENTAL
     Indication: MUSCLE SPASMS
     Dosage: 200-250 MG (1 H)
     Route: 042
     Dates: start: 20120914, end: 20120922
  9. FENTANYL. [Suspect]
     Active Substance: FENTANYL
     Indication: SEDATION
     Dosage: 10-50 MCG/HR (1 IN 1 D)
     Route: 042
     Dates: start: 20120904, end: 20121115
  10. DANTRIUM [Suspect]
     Active Substance: DANTROLENE SODIUM
     Indication: HYPOTONIA
  11. DIPRIVAN [Suspect]
     Active Substance: PROPOFOL
     Indication: MUSCLE SPASMS
     Dosage: 5-10 MG/HR (1 IN 1 D)
     Route: 042
     Dates: start: 20120908, end: 20121114
  12. DIPRIVAN [Suspect]
     Active Substance: PROPOFOL
     Indication: SEDATION
  13. FENTANYL. [Suspect]
     Active Substance: FENTANYL
     Indication: MUSCLE SPASMS
     Dosage: 10-50 MCG (1 H)
     Route: 042
     Dates: start: 20120904, end: 20121115
  14. MAGNESIUM SULFATE. [Suspect]
     Active Substance: MAGNESIUM SULFATE
     Indication: MUSCLE TWITCHING
     Dosage: 20-60 MEQ/DAY (1 IN 1 D)
     Route: 042
     Dates: start: 20120908, end: 20121113
  15. PENICILLIN G                       /00000901/ [Suspect]
     Active Substance: PENICILLIN G
     Indication: INFECTION
     Dosage: 4 MILLION IU (6 IN 1 D)
     Route: 042
     Dates: start: 20120904, end: 20120912
  16. MAGNESIUM SULFATE. [Suspect]
     Active Substance: MAGNESIUM SULFATE
     Indication: MUSCLE TIGHTNESS
  17. SULBACILLIN [Suspect]
     Active Substance: AMPICILLIN SODIUM\SULBACTAM SODIUM
     Indication: INFECTION
     Dosage: 1.5-3 G; 2-3 TIMES A DAY
     Route: 042
     Dates: start: 20120914, end: 20120919
  18. MIDAZOLAM [Suspect]
     Active Substance: MIDAZOLAM HYDROCHLORIDE
     Dosage: UNK
     Route: 042
  19. RAVONAL [Suspect]
     Active Substance: THIOPENTAL
     Indication: SEDATION
     Dosage: 200-250 MG/HR (1 IN 1 D)
     Route: 042
     Dates: start: 20120914, end: 20120922
  20. CEFAMEZIN ALPHA [Suspect]
     Active Substance: CEFAZOLIN SODIUM
     Indication: INFECTION
     Dosage: 3 G (1 G, 3 IN 1 D)
     Route: 042
     Dates: start: 20120913, end: 20120913

REACTIONS (3)
  - Drug reaction with eosinophilia and systemic symptoms [Unknown]
  - Multiple organ dysfunction syndrome [Recovered/Resolved]
  - Histiocytosis haematophagic [Recovered/Resolved]

NARRATIVE: CASE EVENT DATE: 20120923
